FAERS Safety Report 8595887-5 (Version None)
Quarter: 2012Q3

REPORT INFORMATION
  Report Type: 
  Country: None (occurrence: None)
  Receive Date: 20120815
  Receipt Date: 19920212
  Transmission Date: 20120928
  Serious: Yes (Other)
  Sender: FDA-Public Use
  Company Number: US-ROCHE-1099794

PATIENT
  Sex: Male

DRUGS (2)
  1. ACTIVASE [Suspect]
     Indication: MYOCARDIAL INFARCTION
  2. METOPROLOL TARTRATE [Concomitant]

REACTIONS (2)
  - DISEASE PROGRESSION [None]
  - HAEMORRHAGE [None]
